FAERS Safety Report 8946909 (Version 1)
Quarter: 2012Q4

REPORT INFORMATION
  Report Type: 
  Country: CN (occurrence: CN)
  Receive Date: 20121205
  Receipt Date: 20121205
  Transmission Date: 20130627
  Serious: Yes (Hospitalization, Other)
  Sender: FDA-Public Use
  Company Number: CN-GLAXOSMITHKLINE-B0849652A

PATIENT
  Age: 75 Year
  Sex: Female

DRUGS (4)
  1. PACLITAXEL [Suspect]
     Indication: OVARIAN EPITHELIAL CANCER
     Route: 065
  2. NEDAPLATIN [Suspect]
     Indication: OVARIAN EPITHELIAL CANCER
     Route: 065
  3. DEXAMETHASONE [Suspect]
     Indication: OVARIAN EPITHELIAL CANCER
     Route: 065
  4. ONDANSETRON [Suspect]
     Indication: OVARIAN EPITHELIAL CANCER
     Route: 065

REACTIONS (5)
  - Intestinal perforation [Recovered/Resolved]
  - Vomiting [Recovered/Resolved]
  - Blood electrolytes abnormal [Unknown]
  - Pyrexia [Unknown]
  - Abdominal adhesions [Unknown]
